FAERS Safety Report 4461588-8 (Version None)
Quarter: 2004Q3

REPORT INFORMATION
  Report Type: 
  Country: None (occurrence: None)
  Receive Date: 20040924
  Receipt Date: 20040914
  Transmission Date: 20050211
  Serious: Yes (Hospitalization)
  Sender: FDA-Public Use
  Company Number: HQWYE220314OCT03

PATIENT
  Age: 66 Year
  Sex: Female
  Weight: 48.7 kg

DRUGS (1)
  1. MYLOTARG [Suspect]
     Indication: ACUTE MYELOID LEUKAEMIA
     Dosage: 13.5 MG 1X PER 1 DAY, INTRAVENOUS
     Route: 042
     Dates: start: 20031001, end: 20031001

REACTIONS (10)
  - ABDOMINAL PAIN [None]
  - BACTERIAL SEPSIS [None]
  - BLAST CELL COUNT INCREASED [None]
  - DIARRHOEA [None]
  - HAEMATOCRIT DECREASED [None]
  - HAEMOGLOBIN DECREASED [None]
  - LYMPHOCYTE COUNT INCREASED [None]
  - NEUTROPENIA [None]
  - WEIGHT INCREASED [None]
  - WHITE BLOOD CELL COUNT DECREASED [None]
